FAERS Safety Report 11151901 (Version 3)
Quarter: 2015Q3

REPORT INFORMATION
  Report Type: Spontaneous
  Country: US (occurrence: US)
  Receive Date: 20150601
  Receipt Date: 20150701
  Transmission Date: 20151125
  Serious: Yes (Life-Threatening)
  Sender: FDA-Public Use
  Company Number: US-PFIZER INC-2015181988

PATIENT
  Age: 34 Year
  Sex: Male

DRUGS (5)
  1. PRISTIQ EXTENDED RELEASE [Concomitant]
     Active Substance: DESVENLAFAXINE SUCCINATE
     Indication: PANIC ATTACK
  2. ZOLPIDEM [Concomitant]
     Active Substance: ZOLPIDEM\ZOLPIDEM TARTRATE
     Dosage: UNK
  3. GEODON [Suspect]
     Active Substance: ZIPRASIDONE HYDROCHLORIDE\ZIPRASIDONE MESYLATE
     Indication: DEPRESSION
     Dosage: 160 MG, 1X/DAY (WITH DINNER)
     Route: 048
     Dates: start: 20100108, end: 20100317
  4. PRISTIQ EXTENDED RELEASE [Concomitant]
     Active Substance: DESVENLAFAXINE SUCCINATE
     Indication: DEPRESSION
     Dosage: UNK
     Dates: start: 20091222
  5. GEODON [Suspect]
     Active Substance: ZIPRASIDONE HYDROCHLORIDE\ZIPRASIDONE MESYLATE
     Indication: PANIC DISORDER

REACTIONS (4)
  - Tachycardia [Recovered/Resolved with Sequelae]
  - Drug hypersensitivity [Unknown]
  - Dystonia [Recovered/Resolved with Sequelae]
  - Laryngospasm [Recovered/Resolved with Sequelae]

NARRATIVE: CASE EVENT DATE: 20100317
